FAERS Safety Report 9426410 (Version 1)
Quarter: 2013Q3

REPORT INFORMATION
  Report Type: Spontaneous
  Country: US (occurrence: US)
  Receive Date: 20130730
  Receipt Date: 20130730
  Transmission Date: 20140515
  Serious: Yes (Hospitalization, Other)
  Sender: FDA-Public Use
  Company Number: US-BAYER-2013-088727

PATIENT
  Age: 15 Year
  Sex: Female
  Weight: 117.91 kg

DRUGS (5)
  1. YASMIN [Suspect]
  2. NAPROXEN [Concomitant]
     Dosage: UNK
     Dates: start: 20030802
  3. ZITHROMAX [Concomitant]
     Dosage: UNK
     Dates: start: 20030802
  4. TRAMADOL [Concomitant]
     Dosage: UNK
     Dates: start: 20030812
  5. BEXTRA [Concomitant]
     Dosage: UNK
     Dates: start: 20030812

REACTIONS (4)
  - Deep vein thrombosis [None]
  - Thrombophlebitis superficial [None]
  - Pulmonary embolism [None]
  - Iliac vein occlusion [None]
